FAERS Safety Report 16743966 (Version 1)
Quarter: 2019Q3

REPORT INFORMATION
  Report Type: Spontaneous
  Country: US (occurrence: US)
  Receive Date: 20190827
  Receipt Date: 20190827
  Transmission Date: 20191005
  Serious: Yes (Other)
  Sender: FDA-Public Use
  Company Number: US-TEVA-2019-US-1098648

PATIENT
  Age: 52 Year
  Sex: Female

DRUGS (6)
  1. OXALIPLATIN. [Suspect]
     Active Substance: OXALIPLATIN
     Indication: SMALL INTESTINE CARCINOMA
     Dosage: RECEIVED 6 CYCLES
     Route: 065
  2. IRINOTECAN [Suspect]
     Active Substance: IRINOTECAN
     Indication: SMALL INTESTINE CARCINOMA
     Route: 065
     Dates: start: 201606
  3. FOLINIC-ACID [Concomitant]
     Active Substance: LEUCOVORIN
     Dosage: FOLFIRI REGIMEN
     Route: 065
     Dates: start: 201606
  4. 5-FLUOROURACIL [Suspect]
     Active Substance: FLUOROURACIL
     Indication: SMALL INTESTINE CARCINOMA
     Dosage: FOLFOX REGIMEN: RECEIVED 6 CYCLES
     Route: 065
  5. 5-FLUOROURACIL [Suspect]
     Active Substance: FLUOROURACIL
     Indication: SMALL INTESTINE CARCINOMA
     Dosage: FOLFIRI REGIMEN
     Route: 065
     Dates: start: 201606
  6. FOLINIC-ACID [Concomitant]
     Active Substance: LEUCOVORIN
     Dosage: FOLFOX REGIMEN: RECEIVED 6 CYCLES
     Route: 065

REACTIONS (1)
  - Drug ineffective [Unknown]
